FAERS Safety Report 10146029 (Version 3)
Quarter: 2014Q2

REPORT INFORMATION
  Report Type: Report from Study
  Country: HN (occurrence: HN)
  Receive Date: 20140501
  Receipt Date: 20140506
  Transmission Date: 20141212
  Serious: Yes (Death, Life-Threatening, Other)
  Sender: FDA-Public Use
  Company Number: PHHY2014HN048955

PATIENT
  Sex: Female
  Weight: 44.7 kg

DRUGS (2)
  1. GLIVEC [Suspect]
     Indication: CHRONIC MYELOID LEUKAEMIA
     Dosage: 400 MG, QD (EVERY 24 HOURS)
     Route: 048
  2. HYDROXYUREA [Concomitant]
     Dosage: 2 DF, QD (EVERY 24 HOURS)

REACTIONS (9)
  - Chronic myeloid leukaemia transformation [Fatal]
  - Chronic myeloid leukaemia [Fatal]
  - Lymphadenopathy [Fatal]
  - Pyrexia [Fatal]
  - Splenomegaly [Fatal]
  - Malignant neoplasm progression [Fatal]
  - Thrombocytopenia [Unknown]
  - Anaemia [Unknown]
  - Leukocytosis [Unknown]
